FAERS Safety Report 6121271-X (Version None)
Quarter: 2009Q1

REPORT INFORMATION
  Report Type: 
  Country: None (occurrence: None)
  Receive Date: 20090317
  Receipt Date: 20090309
  Transmission Date: 20090719
  Serious: Yes (Hospitalization, Other)
  Sender: FDA-Public Use
  Company Number: DE-VALEANT-2009VX000415

PATIENT
  Age: 67 Year
  Sex: Female

DRUGS (7)
  1. DALMANE [Suspect]
     Dosage: DOSE UNIT:UNKNOWN
     Route: 048
  2. AMITRIPTYLINE [Suspect]
     Route: 048
  3. HEMODORM [Suspect]
     Route: 048
  4. DOXYLAMINE SUCCINATE [Suspect]
     Route: 048
  5. TRAZODONE HCL [Suspect]
     Route: 048
  6. ZOLPIDEM [Suspect]
     Route: 048
  7. ZOPICLONE [Suspect]
     Route: 048

REACTIONS (4)
  - DEPRESSED LEVEL OF CONSCIOUSNESS [None]
  - HYPOTHERMIA [None]
  - SUICIDE ATTEMPT [None]
  - TACHYCARDIA [None]
